FAERS Safety Report 13621840 (Version 1)
Quarter: 2017Q2

REPORT INFORMATION
  Report Type: Spontaneous
  Country: US (occurrence: US)
  Receive Date: 20170607
  Receipt Date: 20170607
  Transmission Date: 20170830
  Serious: No
  Sender: FDA-Public Use
  Company Number: US-ROCHE-1752686

PATIENT
  Sex: Male

DRUGS (1)
  1. XELODA [Suspect]
     Active Substance: CAPECITABINE
     Indication: PRODUCT USED FOR UNKNOWN INDICATION
     Dosage: BIDX6 WEEKS, TAKE FOR 14 DAYS THEN 7 DAYS OFF.
     Route: 048
     Dates: start: 20160504

REACTIONS (7)
  - Diarrhoea [Not Recovered/Not Resolved]
  - Neuropathy peripheral [Not Recovered/Not Resolved]
  - Skin ulcer [Unknown]
  - Dysuria [Recovered/Resolved]
  - Malaise [Unknown]
  - Fatigue [Not Recovered/Not Resolved]
  - Rectal haemorrhage [Not Recovered/Not Resolved]
